FAERS Safety Report 10704900 (Version 1)
Quarter: 2015Q1

REPORT INFORMATION
  Report Type: Spontaneous
  Country: CA (occurrence: CA)
  Receive Date: 20150112
  Receipt Date: 20150112
  Transmission Date: 20150721
  Serious: Yes (Other)
  Sender: FDA-Public Use
  Company Number: CA-BAYER-2015-002621

PATIENT
  Age: 54 Year
  Sex: Female
  Weight: 119 kg

DRUGS (1)
  1. GADOVIST [Suspect]
     Active Substance: GADOBUTROL
     Dosage: 10 MG, ONCE
     Route: 042

REACTIONS (2)
  - Cough [Recovered/Resolved]
  - Sinus congestion [Recovered/Resolved]
